FAERS Safety Report 17381302 (Version 1)
Quarter: 2020Q1

REPORT INFORMATION
  Report Type: Spontaneous
  Country: US (occurrence: US)
  Receive Date: 20200206
  Receipt Date: 20200206
  Transmission Date: 20200409
  Serious: No
  Sender: FDA-Public Use
  Company Number: None

PATIENT
  Age: 17 Year
  Sex: Male

DRUGS (9)
  1. SYMBICORT 160/4.5 INH [Concomitant]
  2. ALBUTEROL 0.083% NEB [Concomitant]
  3. TOBI 28 MG [Concomitant]
  4. ZYRTEC [Concomitant]
     Active Substance: CETIRIZINE HYDROCHLORIDE
  5. ZENPEP 25000IU [Concomitant]
  6. PULMICORT 1MG NEB [Concomitant]
  7. FLONASE NS [Concomitant]
  8. TRIKAFTA [Suspect]
     Active Substance: ELEXACAFTOR\IVACAFTOR\TEZACAFTOR
     Indication: CYSTIC FIBROSIS
     Route: 048
  9. OMEPRAZOLE 20MG [Concomitant]
     Active Substance: OMEPRAZOLE

REACTIONS (1)
  - Ear infection [None]

NARRATIVE: CASE EVENT DATE: 20200205
